FAERS Safety Report 8922123 (Version 1)
Quarter: 2012Q4

REPORT INFORMATION
  Report Type: Spontaneous
  Country: US (occurrence: None)
  Receive Date: 20121120
  Receipt Date: 20121120
  Transmission Date: 20130627
  Serious: Yes (Other)
  Sender: FDA-Public Use
  Company Number: None

PATIENT
  Sex: Female
  Weight: 99.79 kg

DRUGS (2)
  1. XELODA 500MG GENENTECH [Suspect]
     Indication: COLORECTAL CANCER METASTATIC
     Dosage: 500mg  2 times a day for 14 days PO
9/18/2012-10/19/2012, start back on Xeloda 11/13/2012
     Route: 048
     Dates: start: 20120918, end: 20121019
  2. XELODA 500MG GENENTECH [Suspect]
     Indication: COLORECTAL CANCER METASTATIC
     Dates: start: 20121113

REACTIONS (3)
  - Pulmonary embolism [None]
  - Cerebral thrombosis [None]
  - Thrombosis [None]
